FAERS Safety Report 8840751 (Version 1)
Quarter: 2012Q4

REPORT INFORMATION
  Report Type: 
  Country: FR (occurrence: FR)
  Receive Date: 20121015
  Receipt Date: 20121015
  Transmission Date: 20130627
  Serious: Yes (Hospitalization, Other)
  Sender: FDA-Public Use
  Company Number: FR-ELI_LILLY_AND_COMPANY-FR201210003021

PATIENT
  Age: 52 Year
  Sex: Female

DRUGS (1)
  1. ALIMTA [Suspect]
     Dosage: UNK, unknown
     Route: 065

REACTIONS (2)
  - Myocardial infarction [Unknown]
  - General physical health deterioration [Unknown]
